FAERS Safety Report 20485297 (Version 2)
Quarter: 2022Q2

REPORT INFORMATION
  Report Type: Report from Study
  Country: CA (occurrence: CA)
  Receive Date: 20220217
  Receipt Date: 20220401
  Transmission Date: 20220721
  Serious: Yes (Hospitalization, Other)
  Sender: FDA-Public Use
  Company Number: CA-HLS-202200298

PATIENT
  Age: 67 Year
  Sex: Male

DRUGS (2)
  1. CLOZARIL [Suspect]
     Active Substance: CLOZAPINE
     Indication: Product used for unknown indication
     Dosage: DRUG START DATE: 01-FEB-2022
     Route: 048
  2. CLOZARIL [Suspect]
     Active Substance: CLOZAPINE
     Indication: Product used for unknown indication
     Route: 048
     Dates: start: 19921012, end: 19921124

REACTIONS (13)
  - Neutropenia [Unknown]
  - Schizophrenia [Unknown]
  - Substance abuse [Unknown]
  - Vitamin C decreased [Unknown]
  - Dysphagia [Unknown]
  - Foreign body ingestion [Unknown]
  - Rhabdomyolysis [Unknown]
  - Seizure [Unknown]
  - Water intoxication [Unknown]
  - Sleep apnoea syndrome [Unknown]
  - Loss of consciousness [Unknown]
  - Urinary incontinence [Unknown]
  - White blood cell count decreased [Unknown]

NARRATIVE: CASE EVENT DATE: 19921124
